FAERS Safety Report 8685968 (Version 4)
Quarter: 2015Q1

REPORT INFORMATION
  Report Type: Spontaneous
  Country: US (occurrence: US)
  Receive Date: 20120726
  Receipt Date: 20150226
  Transmission Date: 20150721
  Serious: Yes (Hospitalization)
  Sender: FDA-Public Use
  Company Number: US-ASTRAZENECA-2011SE55188

PATIENT
  Age: 786 Month
  Sex: Female
  Weight: 88 kg

DRUGS (5)
  1. CRESTOR [Suspect]
     Active Substance: ROSUVASTATIN CALCIUM
     Indication: BLOOD CHOLESTEROL INCREASED
     Route: 048
  2. SEROQUEL [Suspect]
     Active Substance: QUETIAPINE FUMARATE
     Route: 048
  3. NEXIUM [Suspect]
     Active Substance: ESOMEPRAZOLE MAGNESIUM
     Indication: GASTROOESOPHAGEAL REFLUX DISEASE
     Route: 048
     Dates: start: 2011, end: 201411
  4. SEROQUEL [Suspect]
     Active Substance: QUETIAPINE FUMARATE
     Dosage: ONLY TAKING ONE TABLET INSTEAD OF THREE
     Route: 048
  5. CRESTOR [Suspect]
     Active Substance: ROSUVASTATIN CALCIUM
     Indication: BLOOD CHOLESTEROL INCREASED
     Route: 048
     Dates: end: 201411

REACTIONS (19)
  - Depression [Unknown]
  - Unevaluable event [Unknown]
  - Intentional product misuse [Unknown]
  - Hypertension [Unknown]
  - Feeling abnormal [Unknown]
  - Headache [Unknown]
  - Gastrooesophageal reflux disease [Unknown]
  - Weight increased [Unknown]
  - Blood cholesterol increased [Unknown]
  - Tremor [Unknown]
  - Drug dose omission [Unknown]
  - Mental disorder [Unknown]
  - Fatigue [Unknown]
  - Heart rate increased [Unknown]
  - Malaise [Unknown]
  - Abdominal discomfort [Unknown]
  - Incoherent [Unknown]
  - Insomnia [Unknown]
  - Emotional distress [Unknown]

NARRATIVE: CASE EVENT DATE: 201404
